FAERS Safety Report 23345242 (Version 1)
Quarter: 2023Q4

REPORT INFORMATION
  Report Type: Other
  Country: CN (occurrence: CN)
  Receive Date: 20231228
  Receipt Date: 20231228
  Transmission Date: 20240109
  Serious: Yes (Hospitalization, Other)
  Sender: FDA-Public Use
  Company Number: CN-ASTELLAS-2023US038718

PATIENT
  Age: 59 Year
  Sex: Female
  Weight: 57.4 kg

DRUGS (2)
  1. PROGRAF [Suspect]
     Active Substance: TACROLIMUS
     Indication: Anti-neutrophil cytoplasmic antibody positive vasculitis
     Route: 048
     Dates: start: 20231025, end: 20231120
  2. PROGRAF [Suspect]
     Active Substance: TACROLIMUS
     Indication: Renal vasculitis

REACTIONS (7)
  - Anti-neutrophil cytoplasmic antibody positive vasculitis [Unknown]
  - Renal vasculitis [Unknown]
  - Condition aggravated [Unknown]
  - Blood creatinine increased [Recovering/Resolving]
  - Anuria [Recovered/Resolved]
  - Immunosuppressant drug level increased [Unknown]
  - Off label use [Unknown]

NARRATIVE: CASE EVENT DATE: 20231025
